FAERS Safety Report 16726235 (Version 2)
Quarter: 2019Q3

REPORT INFORMATION
  Report Type: Spontaneous
  Country: IT (occurrence: IT)
  Receive Date: 20190821
  Receipt Date: 20190826
  Transmission Date: 20191005
  Serious: Yes (Hospitalization, Other)
  Sender: FDA-Public Use
  Company Number: IT-TEVA-2019-IT-1094540

PATIENT
  Age: 32 Year
  Sex: Female

DRUGS (2)
  1. PARACETAMOLO/CODEINA FOSFATO [Suspect]
     Active Substance: ACETAMINOPHEN\CODEINE PHOSPHATE
     Indication: TOOTHACHE
     Dosage: 2DOSAGE FORMS
     Route: 048
     Dates: start: 20190718, end: 20190719
  2. KETOPROFEN. [Suspect]
     Active Substance: KETOPROFEN
     Indication: TOOTHACHE
     Dosage: 14DOSAGE FORMS
     Route: 048
     Dates: start: 20190718, end: 20190719

REACTIONS (2)
  - Hot flush [Recovering/Resolving]
  - Medication error [Recovering/Resolving]

NARRATIVE: CASE EVENT DATE: 20190719
